FAERS Safety Report 8938410 (Version 3)
Quarter: 2017Q1

REPORT INFORMATION
  Report Type: Other
  Country: JP (occurrence: JP)
  Receive Date: 20121130
  Receipt Date: 20170126
  Transmission Date: 20170429
  Serious: Yes (Death, Hospitalization, Other)
  Sender: FDA-Public Use
  Company Number: JP-ACTELION-A-CH2012-75365

PATIENT
  Age: 58 Year
  Sex: Female

DRUGS (3)
  1. SILDENAFIL. [Concomitant]
     Active Substance: SILDENAFIL
  2. TRACLEER [Suspect]
     Active Substance: BOSENTAN
     Dosage: 31.25 MG, QD
     Route: 048
  3. TRACLEER [Suspect]
     Active Substance: BOSENTAN
     Indication: PORTOPULMONARY HYPERTENSION
     Dosage: 62.5 MG, BID
     Route: 048

REACTIONS (18)
  - Oedema peripheral [Fatal]
  - Blood antidiuretic hormone increased [Fatal]
  - Hepatic failure [Fatal]
  - Hyponatraemia [Fatal]
  - Hypoalbuminaemia [Fatal]
  - Blood aldosterone increased [Fatal]
  - Hypertension [Unknown]
  - Hepatotoxicity [Unknown]
  - White blood cell count decreased [Unknown]
  - Hypocoagulable state [Fatal]
  - Hyperbilirubinaemia [Fatal]
  - Ascites [Fatal]
  - Hepatic cancer [Unknown]
  - Pancytopenia [Unknown]
  - Haematocrit decreased [Unknown]
  - Platelet count decreased [Unknown]
  - Hypokalaemia [Fatal]
  - Renin increased [Fatal]
